FAERS Safety Report 8843221 (Version 1)
Quarter: 2012Q4

REPORT INFORMATION
  Report Type: 
  Country: CN (occurrence: CN)
  Receive Date: 20121016
  Receipt Date: 20121016
  Transmission Date: 20130627
  Serious: Yes (Death)
  Sender: FDA-Public Use
  Company Number: PHHY2012CN091240

PATIENT

DRUGS (12)
  1. CICLOSPORIN [Suspect]
     Indication: PROPHYLAXIS AGAINST GRAFT VERSUS HOST DISEASE
  2. METHOTREXATE [Concomitant]
     Indication: PROPHYLAXIS AGAINST GRAFT VERSUS HOST DISEASE
  3. ANTITHYMOCYTE IMMUNOGLOBULIN [Concomitant]
     Indication: PROPHYLAXIS AGAINST GRAFT VERSUS HOST DISEASE
  4. BASILIXIMAB [Concomitant]
     Indication: PROPHYLAXIS AGAINST GRAFT VERSUS HOST DISEASE
  5. MYCOPHENOLATE MOFETIL [Concomitant]
     Indication: PROPHYLAXIS AGAINST GRAFT VERSUS HOST DISEASE
  6. TRIMETHOPRIM [Concomitant]
     Indication: INFECTION PROPHYLAXIS
  7. SINOMIN [Concomitant]
     Indication: INFECTION PROPHYLAXIS
  8. FLUCONAZOLE [Concomitant]
     Indication: INFECTION PROPHYLAXIS
  9. ACICLOVIR [Concomitant]
     Indication: INFECTION PROPHYLAXIS
  10. HEPARIN [Concomitant]
  11. PROSTAGLANDINS [Concomitant]
  12. GRANULOCYTE COLONY STIMULATING FACTOR [Concomitant]

REACTIONS (1)
  - Infection [Fatal]
